FAERS Safety Report 14817962 (Version 2)
Quarter: 2018Q3

REPORT INFORMATION
  Report Type: Spontaneous
  Country: FR (occurrence: FR)
  Receive Date: 20180427
  Receipt Date: 20180726
  Transmission Date: 20181010
  Serious: Yes (Other)
  Sender: FDA-Public Use
  Company Number: FR-ASTRAZENECA-2018SE52675

PATIENT
  Age: 58 Year
  Sex: Male

DRUGS (2)
  1. FORADIL [Concomitant]
     Active Substance: FORMOTEROL FUMARATE
     Indication: PRODUCT USED FOR UNKNOWN INDICATION
     Dosage: 24UG/INHAL DAILY
     Route: 055
     Dates: start: 2013
  2. MIFLONIL [Suspect]
     Active Substance: BUDESONIDE
     Indication: PRODUCT USED FOR UNKNOWN INDICATION
     Dosage: 400UG/INHAL DAILY
     Route: 055
     Dates: start: 2013

REACTIONS (2)
  - Foreign body aspiration [Unknown]
  - Device malfunction [Unknown]
